FAERS Safety Report 23916606 (Version 1)
Quarter: 2024Q2

REPORT INFORMATION
  Report Type: Spontaneous
  Country: US (occurrence: US)
  Receive Date: 20240529
  Receipt Date: 20240529
  Transmission Date: 20240716
  Serious: Yes (Other)
  Sender: FDA-Public Use
  Company Number: US-AMGEN-USASP2024102669

PATIENT

DRUGS (2)
  1. IVABRADINE [Suspect]
     Active Substance: IVABRADINE
     Indication: Inappropriate sinus tachycardia
     Dosage: UNK
     Route: 065
  2. IVABRADINE [Suspect]
     Active Substance: IVABRADINE
     Indication: Off label use

REACTIONS (5)
  - Pericarditis [Unknown]
  - Inappropriate sinus tachycardia [Unknown]
  - Drug ineffective for unapproved indication [Unknown]
  - Drug effective for unapproved indication [Unknown]
  - Off label use [Unknown]
